FAERS Safety Report 5149127-X (Version None)
Quarter: 2006Q4

REPORT INFORMATION
  Report Type: 
  Country: None (occurrence: None)
  Receive Date: 20061113
  Receipt Date: 20060801
  Transmission Date: 20070319
  Serious: No
  Sender: FDA-Public Use
  Company Number: US-GLAXOSMITHKLINE-A0614733A

PATIENT
  Sex: Male

DRUGS (1)
  1. COREG [Suspect]
     Dosage: 50MG PER DAY
     Route: 065
     Dates: start: 20040101

REACTIONS (2)
  - DYSPNOEA [None]
  - FATIGUE [None]
